FAERS Safety Report 17671147 (Version 1)
Quarter: 2020Q2

REPORT INFORMATION
  Report Type: Spontaneous
  Country: US (occurrence: US)
  Receive Date: 20200415
  Receipt Date: 20200415
  Transmission Date: 20200713
  Serious: No
  Sender: FDA-Public Use
  Company Number: None

PATIENT
  Age: 60 Year
  Sex: Female
  Weight: 85.05 kg

DRUGS (16)
  1. GAVILYTE [Concomitant]
  2. HYDRALAZINE [Concomitant]
     Active Substance: HYDRALAZINE HYDROCHLORIDE
  3. SILDENAFIL. [Concomitant]
     Active Substance: SILDENAFIL
  4. IMIQUIMOD. [Concomitant]
     Active Substance: IMIQUIMOD
  5. SEVELAMER [Concomitant]
     Active Substance: SEVELAMER
  6. COREG [Concomitant]
     Active Substance: CARVEDILOL
  7. CLONIDINE. [Concomitant]
     Active Substance: CLONIDINE
  8. AMLODIPINE [Concomitant]
     Active Substance: AMLODIPINE BESYLATE
  9. FUROSEMIDE. [Concomitant]
     Active Substance: FUROSEMIDE
  10. SUTENT [Suspect]
     Active Substance: SUNITINIB MALATE
     Indication: RENAL CANCER
     Route: 048
     Dates: start: 20200325
  11. CINACALCET. [Concomitant]
     Active Substance: CINACALCET
  12. PROMETHAZINE PHENYLEPHERINE CODEINE [Concomitant]
  13. EMLA OINTMENT [Concomitant]
  14. AMOXICILLIN. [Concomitant]
     Active Substance: AMOXICILLIN
  15. PODOFILOX. [Concomitant]
     Active Substance: PODOFILOX
  16. VITAMINS NOS [Concomitant]
     Active Substance: VITAMINS

REACTIONS (4)
  - Blood pressure increased [None]
  - Dyspnoea [None]
  - Decreased appetite [None]
  - Asthenia [None]

NARRATIVE: CASE EVENT DATE: 20200415
